FAERS Safety Report 22123154 (Version 1)
Quarter: 2023Q1

REPORT INFORMATION
  Report Type: Spontaneous
  Country: GB (occurrence: GB)
  Receive Date: 20230322
  Receipt Date: 20230322
  Transmission Date: 20230418
  Serious: Yes (Other)
  Sender: FDA-Public Use
  Company Number: None

PATIENT
  Age: 47 Year
  Sex: Female
  Weight: 121 kg

DRUGS (9)
  1. XARELTO [Suspect]
     Active Substance: RIVAROXABAN
     Indication: Product used for unknown indication
     Dosage: 15 MG, QD
     Route: 048
     Dates: start: 20230228, end: 20230310
  2. ESTRIOL [Concomitant]
     Active Substance: ESTRIOL
     Dosage: UNK
     Dates: start: 20200130
  3. ESTRADIOL [Concomitant]
     Active Substance: ESTRADIOL
     Dosage: 1 DF, BIW
     Dates: start: 20190711
  4. LEVOTHYROXINE [Concomitant]
     Active Substance: LEVOTHYROXINE
     Dosage: 100 UG, BID
     Dates: start: 20190711
  5. OMEPRAZOLE [Concomitant]
     Active Substance: OMEPRAZOLE
     Dosage: 1 DF, QD
     Route: 048
     Dates: start: 20211025
  6. SERTRALINE [Concomitant]
     Active Substance: SERTRALINE HYDROCHLORIDE
     Dosage: 1 DF, QD
     Dates: start: 20220420
  7. TESTOSTERONE [Concomitant]
     Active Substance: TESTOSTERONE
     Dosage: .25 DF, QD
     Route: 048
     Dates: start: 20190711
  8. TRAMADOL [Concomitant]
     Active Substance: TRAMADOL
     Dates: start: 20190711
  9. WARFARIN SODIUM [Concomitant]
     Active Substance: WARFARIN SODIUM
     Dates: start: 20190711, end: 20230228

REACTIONS (1)
  - Myalgia [Unknown]
